FAERS Safety Report 5038567-5 (Version None)
Quarter: 2006Q2

REPORT INFORMATION
  Report Type: 
  Country: None (occurrence: None)
  Receive Date: 20060629
  Receipt Date: 20060619
  Transmission Date: 20061013
  Serious: Yes (Other)
  Sender: FDA-Public Use
  Company Number: PT-BRISTOL-MYERS SQUIBB COMPANY-13416409

PATIENT

DRUGS (1)
  1. STAVUDINE [Suspect]

REACTIONS (1)
  - MALIGNANT PALATE NEOPLASM [None]
